FAERS Safety Report 23203449 (Version 2)
Quarter: 2023Q4

REPORT INFORMATION
  Report Type: Spontaneous
  Country: CZ (occurrence: None)
  Receive Date: 20231120
  Receipt Date: 20231226
  Transmission Date: 20240109
  Serious: Yes (Hospitalization)
  Sender: FDA-Public Use
  Company Number: CZ-ROCHE-3454868

PATIENT
  Age: 35 Year
  Sex: Female

DRUGS (1)
  1. OCREVUS [Suspect]
     Active Substance: OCRELIZUMAB
     Indication: Relapsing-remitting multiple sclerosis
     Dosage: A TOTAL OF THREE DOSES ON MAY/2022, DEC/2022, AND MAY/2023
     Route: 065

REACTIONS (7)
  - Vomiting [Unknown]
  - Weight decreased [Unknown]
  - Speech disorder [Unknown]
  - Gait disturbance [Unknown]
  - General physical health deterioration [Unknown]
  - Dysarthria [Unknown]
  - Ataxia [Unknown]

NARRATIVE: CASE EVENT DATE: 20230801
